FAERS Safety Report 17439875 (Version 1)
Quarter: 2020Q1

REPORT INFORMATION
  Report Type: Spontaneous
  Country: US (occurrence: US)
  Receive Date: 20200205
  Receipt Date: 20200205
  Transmission Date: 20200409
  Serious: Yes (Life-Threatening)
  Sender: FDA-Public Use
  Company Number: None

PATIENT
  Sex: Male

DRUGS (1)
  1. TESTOPEL [Suspect]
     Active Substance: TESTOSTERONE
     Indication: TESTICULAR DISORDER
     Dosage: ?          OTHER DOSE:11 PELLETS;OTHER FREQUENCY:Q4M;?
     Route: 058
     Dates: start: 20170624

REACTIONS (1)
  - Carditis [None]
